FAERS Safety Report 4987097-5 (Version None)
Quarter: 2006Q2

REPORT INFORMATION
  Report Type: 
  Country: None (occurrence: None)
  Receive Date: 20060501
  Receipt Date: 20060420
  Transmission Date: 20061013
  Serious: Yes (Other)
  Sender: FDA-Public Use
  Company Number: US-JNJFOC-20060404476

PATIENT
  Sex: Female

DRUGS (7)
  1. REMICADE [Suspect]
     Dosage: 6 VIALS
     Route: 042
  2. REMICADE [Suspect]
     Dosage: 6 VIALS
     Route: 042
  3. REMICADE [Suspect]
     Indication: RHEUMATOID ARTHRITIS
     Dosage: 6 VIALS
     Route: 042
  4. TYLENOL (CAPLET) [Concomitant]
     Indication: PAIN
  5. TYLENOL (CAPLET) [Concomitant]
     Indication: HEADACHE
  6. METHOTREXATE [Concomitant]
  7. MULTIVITAMIN WITH IRON [Concomitant]

REACTIONS (4)
  - HEART RATE INCREASED [None]
  - HOT FLUSH [None]
  - HYSTERECTOMY [None]
  - INFUSION RELATED REACTION [None]
